FAERS Safety Report 8520458-6 (Version None)
Quarter: 2012Q3

REPORT INFORMATION
  Report Type: 
  Country: None (occurrence: None)
  Receive Date: 20120719
  Receipt Date: 20120710
  Transmission Date: 20120928
  Serious: Yes (Other)
  Sender: FDA-Public Use
  Company Number: DE-PFIZER INC-2012171921

PATIENT
  Age: 73 Year
  Sex: Male

DRUGS (4)
  1. METFORMIN HYDROCHLORIDE [Concomitant]
     Dosage: UNK
  2. INSULIN [Concomitant]
     Dosage: UNK
  3. RAMIPRIL [Suspect]
     Indication: BLOOD PRESSURE INCREASED
     Dosage: 5 MG, UNK
     Route: 048
  4. SIMVASTATIN [Concomitant]
     Dosage: UNK

REACTIONS (1)
  - URETHRAL STENOSIS [None]
